FAERS Safety Report 13910150 (Version 1)
Quarter: 2017Q3

REPORT INFORMATION
  Report Type: Spontaneous
  Country: US (occurrence: None)
  Receive Date: 20170822
  Receipt Date: 20170822
  Transmission Date: 20171127
  Serious: Yes (Other)
  Sender: FDA-Public Use
  Company Number: None

PATIENT
  Age: 43 Year
  Sex: Female
  Weight: 67.59 kg

DRUGS (1)
  1. EXJADE [Suspect]
     Active Substance: DEFERASIROX
     Indication: IRON OVERLOAD
     Dosage: 2 TABLE TWICE/DAY
     Route: 048
     Dates: start: 20170817

REACTIONS (2)
  - Nasal cavity mass [None]
  - Rash [None]

NARRATIVE: CASE EVENT DATE: 20170816
